FAERS Safety Report 10260581 (Version 1)
Quarter: 2014Q2

REPORT INFORMATION
  Report Type: Spontaneous
  Country: GB (occurrence: GB)
  Receive Date: 20140626
  Receipt Date: 20140626
  Transmission Date: 20141212
  Serious: Yes (Death, Other)
  Sender: FDA-Public Use
  Company Number: GB-UCBSA-2014003040

PATIENT
  Sex: Male

DRUGS (9)
  1. ROTIGOTINE [Suspect]
     Dosage: 8 MG, UNK
     Route: 062
  2. ROTIGOTINE [Suspect]
     Dosage: 16 MG, UNK
     Route: 062
  3. AMLODIPINE [Suspect]
     Dosage: UNK
  4. MADOPAR [Suspect]
  5. RASAGILINE [Suspect]
     Dosage: 1 MG, UNK
  6. SINEMET [Suspect]
     Dosage: 125 MG, 3X/DAY (TID)
  7. SINEMET CR [Suspect]
     Dosage: 250 MG, ONCE DAILY (QD)
  8. STALEVO [Suspect]
     Dosage: 200 MG, 4X/DAY (QID)
  9. WARFARIN [Suspect]
     Dosage: UNK

REACTIONS (2)
  - Myocardial infarction [Fatal]
  - Myocardial ischaemia [Unknown]
